FAERS Safety Report 15786252 (Version 1)
Quarter: 2018Q4

REPORT INFORMATION
  Report Type: Spontaneous
  Country: US (occurrence: US)
  Receive Date: 20181212
  Receipt Date: 20181212
  Transmission Date: 20190205
  Serious: No
  Sender: FDA-Public Use
  Company Number: None

PATIENT
  Age: 47 Year

DRUGS (1)
  1. TYKERB [Suspect]
     Active Substance: LAPATINIB DITOSYLATE
     Route: 048
     Dates: start: 201809

REACTIONS (5)
  - Diarrhoea [None]
  - Dry skin [None]
  - Paraesthesia [None]
  - Hypoaesthesia [None]
  - Onychoclasis [None]

NARRATIVE: CASE EVENT DATE: 20181207
